FAERS Safety Report 9180914 (Version 1)
Quarter: 2013Q1

REPORT INFORMATION
  Report Type: Spontaneous
  Country: JP (occurrence: JP)
  Receive Date: 20130322
  Receipt Date: 20130322
  Transmission Date: 20140127
  Serious: Yes (Hospitalization)
  Sender: FDA-Public Use
  Company Number: PHHY2013JP009850

PATIENT
  Age: 76 Year
  Sex: Female

DRUGS (2)
  1. NEORAL [Suspect]
     Indication: INTERSTITIAL LUNG DISEASE
     Dosage: 250 MG, DAILY
     Route: 048
     Dates: end: 20130129
  2. VITAMIN D3 [Suspect]
     Route: 048
     Dates: end: 20130129

REACTIONS (2)
  - Renal disorder [Recovering/Resolving]
  - Hypercalcaemia [Recovering/Resolving]
